FAERS Safety Report 14963052 (Version 2)
Quarter: 2018Q2

REPORT INFORMATION
  Report Type: Spontaneous
  Country: BR (occurrence: BR)
  Receive Date: 20180601
  Receipt Date: 20180627
  Transmission Date: 20180711
  Serious: Yes (Other)
  Sender: FDA-Public Use
  Company Number: BR-ROCHE-2131640

PATIENT
  Age: 55 Year
  Sex: Female
  Weight: 74.3 kg

DRUGS (10)
  1. VINORELBINE [Concomitant]
     Active Substance: VINORELBINE\VINORELBINE TARTRATE
     Indication: BREAST CANCER
     Route: 048
     Dates: start: 20171004, end: 20171010
  2. ONDANSETRON [Concomitant]
     Active Substance: ONDANSETRON
     Route: 048
     Dates: start: 20171010, end: 20171010
  3. GABAPENTIN. [Concomitant]
     Active Substance: GABAPENTIN
     Route: 048
     Dates: start: 20171004, end: 20171104
  4. DOCETAXEL. [Suspect]
     Active Substance: DOCETAXEL
     Indication: BREAST CANCER
     Dosage: 3 TIMES
     Route: 065
     Dates: start: 201702, end: 201703
  5. SCOPOLAMINE [Concomitant]
     Active Substance: SCOPOLAMINE
     Route: 048
     Dates: start: 20171004, end: 20171025
  6. HERCEPTIN [Suspect]
     Active Substance: TRASTUZUMAB
     Route: 042
     Dates: start: 201702, end: 201703
  7. DIAZEPAM. [Concomitant]
     Active Substance: DIAZEPAM
     Dosage: 1 TABLET AT 10 PM
     Route: 048
     Dates: start: 20171004, end: 20171025
  8. MORPHINE [Concomitant]
     Active Substance: MORPHINE
     Route: 048
     Dates: start: 20171004, end: 20171104
  9. HERCEPTIN [Suspect]
     Active Substance: TRASTUZUMAB
     Indication: BREAST CANCER
     Route: 042
     Dates: start: 20171010, end: 20171010
  10. VINORELBINE [Concomitant]
     Active Substance: VINORELBINE\VINORELBINE TARTRATE
     Route: 048
     Dates: start: 20171004, end: 20171010

REACTIONS (4)
  - Metastases to lung [Unknown]
  - Tremor [Recovered/Resolved]
  - Metastases to skin [Unknown]
  - Pain [Recovered/Resolved]

NARRATIVE: CASE EVENT DATE: 201703
